FAERS Safety Report 24608278 (Version 3)
Quarter: 2025Q1

REPORT INFORMATION
  Report Type: Spontaneous
  Country: US (occurrence: US)
  Receive Date: 20241112
  Receipt Date: 20250225
  Transmission Date: 20250409
  Serious: Yes (Other)
  Sender: ASTELLAS
  Company Number: US-ASTELLAS-2024-AER-016634

PATIENT
  Age: 93 Year
  Sex: Female

DRUGS (3)
  1. IZERVAY [Suspect]
     Active Substance: AVACINCAPTAD PEGOL SODIUM
     Indication: Dry age-related macular degeneration
     Dates: start: 2023
  2. ANAGRELIDE [Concomitant]
     Active Substance: ANAGRELIDE
     Indication: Platelet disorder
     Route: 065
  3. EYLEA [Concomitant]
     Active Substance: AFLIBERCEPT
     Indication: Choroidal neovascularisation
     Route: 065

REACTIONS (2)
  - Dry age-related macular degeneration [Not Recovered/Not Resolved]
  - Condition aggravated [Not Recovered/Not Resolved]

NARRATIVE: CASE EVENT DATE: 20231001
